FAERS Safety Report 5216467-5 (Version None)
Quarter: 2006Q4

REPORT INFORMATION
  Report Type: 
  Country: None (occurrence: None)
  Receive Date: 20061129
  Receipt Date: 20030528
  Transmission Date: 20070319
  Serious: No
  Sender: FDA-Public Use
  Company Number: 2003UW06835

PATIENT
  Sex: Female

DRUGS (1)
  1. FASLODEX [Suspect]
     Dosage: 125 MG/ 2.5 ML X2

REACTIONS (1)
  - MALIGNANT NEOPLASM PROGRESSION [None]
